FAERS Safety Report 7890666-6 (Version None)
Quarter: 2011Q4

REPORT INFORMATION
  Report Type: 
  Country: None (occurrence: None)
  Receive Date: 20111103
  Receipt Date: 20111026
  Transmission Date: 20120403
  Serious: Yes (Other)
  Sender: FDA-Public Use
  Company Number: US-ASTRAZENECA-2011SE65011

PATIENT
  Age: 82 Year
  Sex: Female

DRUGS (3)
  1. ACCOLATE [Suspect]
     Route: 048
  2. ATACAND [Suspect]
     Route: 048
  3. NEXIUM [Suspect]
     Route: 048

REACTIONS (1)
  - CEREBROVASCULAR ACCIDENT [None]
